FAERS Safety Report 5070067-9 (Version None)
Quarter: 2006Q3

REPORT INFORMATION
  Report Type: 
  Country: None (occurrence: None)
  Receive Date: 20060714
  Receipt Date: 20060406
  Transmission Date: 20061208
  Serious: No
  Sender: FDA-Public Use
  Company Number: 2006SP001589

PATIENT
  Age: 60 Year
  Sex: Female
  Weight: 97.5234 kg

DRUGS (3)
  1. LUNESTA [Suspect]
     Indication: INSOMNIA
     Dosage: 1X; ORAL
     Route: 048
     Dates: start: 20060101, end: 20060101
  2. SYNTHROID [Concomitant]
  3. MOTRIN [Concomitant]

REACTIONS (3)
  - DYSGEUSIA [None]
  - MIDDLE INSOMNIA [None]
  - NAUSEA [None]
